FAERS Safety Report 18455394 (Version 1)
Quarter: 2020Q4

REPORT INFORMATION
  Report Type: Report from Study
  Country: US (occurrence: US)
  Receive Date: 20201102
  Receipt Date: 20201102
  Transmission Date: 20210114
  Serious: Yes (Hospitalization)
  Sender: FDA-Public Use
  Company Number: US-EXELIXIS-CABO-20033918

PATIENT
  Sex: Male

DRUGS (3)
  1. CABOMETYX [Suspect]
     Active Substance: CABOZANTINIB S-MALATE
     Indication: RENAL CELL CARCINOMA
     Dosage: 40 MG
     Dates: start: 201807
  2. CABOMETYX [Suspect]
     Active Substance: CABOZANTINIB S-MALATE
     Dosage: 20 MG, QD
     Dates: start: 20200903
  3. CABOMETYX [Suspect]
     Active Substance: CABOZANTINIB S-MALATE
     Dosage: 20 MG, QD

REACTIONS (8)
  - Gallbladder disorder [Recovered/Resolved]
  - Product dose omission issue [Unknown]
  - Constipation [Recovered/Resolved]
  - Bone neoplasm [Not Recovered/Not Resolved]
  - Fatigue [Unknown]
  - Skin ulcer [Not Recovered/Not Resolved]
  - Sepsis [Unknown]
  - Nerve compression [Not Recovered/Not Resolved]
